FAERS Safety Report 8580948-7 (Version None)
Quarter: 2012Q3

REPORT INFORMATION
  Report Type: 
  Country: None (occurrence: None)
  Receive Date: 20120809
  Receipt Date: 20120806
  Transmission Date: 20120928
  Serious: No
  Sender: FDA-Public Use
  Company Number: US-PFIZER INC-2012191184

PATIENT
  Sex: Female

DRUGS (4)
  1. MOTRIN [Suspect]
     Indication: PARAESTHESIA
  2. MOTRIN [Suspect]
     Indication: JOINT SWELLING
     Dosage: UNK
  3. HYDROCODONE [Suspect]
     Indication: JOINT SWELLING
     Dosage: UNK
  4. HYDROCODONE [Suspect]
     Indication: PARAESTHESIA

REACTIONS (1)
  - DRUG INEFFECTIVE [None]
